FAERS Safety Report 9568329 (Version 1)
Quarter: 2013Q3

REPORT INFORMATION
  Report Type: Spontaneous
  Country: US (occurrence: US)
  Receive Date: 20130930
  Receipt Date: 20130930
  Transmission Date: 20140515
  Serious: No
  Sender: FDA-Public Use
  Company Number: US-AMGEN-USASP2013057941

PATIENT
  Age: 64 Year
  Sex: Female
  Weight: 62.59 kg

DRUGS (9)
  1. ENBREL [Suspect]
     Indication: PRODUCT USED FOR UNKNOWN INDICATION
     Dosage: 50 MG, 2 TIMES/WK
     Route: 058
  2. HUMIRA [Concomitant]
     Indication: PSORIASIS
     Dosage: UNK
  3. CALCITRATE [Concomitant]
     Dosage: 600 UNK, UNK
  4. RAMIPRIL [Concomitant]
     Dosage: 1.25 MG, UNK
  5. HYDROCHLOROTH [Concomitant]
     Dosage: 12.5 MG, UNK
  6. SORIATANE [Concomitant]
     Dosage: 17.5 MG, UNK
  7. HYDROXYZINE                        /00058402/ [Concomitant]
     Dosage: 10 MG, UNK
  8. BYSTOLIC [Concomitant]
     Dosage: 10 MG, UNK
  9. LEXAPRO [Concomitant]
     Dosage: 20 MG, UNK

REACTIONS (1)
  - Rash [Unknown]
